FAERS Safety Report 6252114-1 (Version None)
Quarter: 2009Q2

REPORT INFORMATION
  Report Type: 
  Country: None (occurrence: None)
  Receive Date: 20090630
  Receipt Date: 20061003
  Transmission Date: 20091009
  Serious: Yes (Hospitalization)
  Sender: FDA-Public Use
  Company Number: US-ROCHE-639061

PATIENT
  Sex: Female

DRUGS (6)
  1. ENFUVIRTIDE [Suspect]
     Indication: HIV INFECTION
     Route: 065
     Dates: start: 20060901, end: 20071107
  2. EPIVIR [Concomitant]
     Dates: start: 20060901, end: 20070109
  3. NORVIR [Concomitant]
     Dates: start: 20060901, end: 20080814
  4. PREZISTA [Concomitant]
     Dates: start: 20060901, end: 20080814
  5. RETROVIR [Concomitant]
     Dates: start: 20060901, end: 20070109
  6. ACYCLOVIR [Concomitant]
     Dates: start: 20060901, end: 20060926

REACTIONS (1)
  - GENITAL DISORDER FEMALE [None]
